FAERS Safety Report 8298238 (Version 2)
Quarter: 2012Q4

REPORT INFORMATION
  Report Type: Report from Study
  Country: FR (occurrence: FR)
  Receive Date: 20111219
  Receipt Date: 20121220
  Transmission Date: 20130627
  Serious: Yes (Hospitalization)
  Sender: FDA-Public Use
  Company Number: FR-NOVOPROD-341269

PATIENT
  Age: 67 Year
  Sex: Male
  Weight: 121 kg

DRUGS (10)
  1. LIRAGLUTIDE FLEXPEN [Suspect]
     Indication: TYPE 2 DIABETES MELLITUS
     Dosage: 1.8 mg, qd
     Route: 058
     Dates: start: 20110505, end: 20111104
  2. STAGID [Concomitant]
     Dosage: 2100 mg, qd
     Route: 048
     Dates: start: 20110501
  3. GLIMEPIRIDE [Concomitant]
     Dosage: 4 mg, qd
     Route: 048
     Dates: start: 20110501
  4. CRESTOR [Concomitant]
     Dosage: 10 mg, qd
     Route: 048
     Dates: start: 20110501
  5. ALLOPURINOL [Concomitant]
     Dosage: 200 mg, qd
     Route: 048
     Dates: start: 20110501
  6. PANTOPRAZOLE [Concomitant]
     Dosage: 20 mg, qd
     Route: 048
     Dates: start: 20110501
  7. BROMAZEPAM [Concomitant]
     Dosage: 1.5 mg, qd
     Route: 048
  8. COVERSYL                           /00790702/ [Concomitant]
     Dosage: 5 mg, qd
     Route: 048
  9. SEROPLEX [Concomitant]
     Dosage: 5 mg, qd
     Route: 048
  10. TIORFAN [Concomitant]
     Dosage: x2
     Route: 048

REACTIONS (2)
  - Thrombocytopenia [Not Recovered/Not Resolved]
  - Diabetes mellitus inadequate control [Not Recovered/Not Resolved]
